FAERS Safety Report 11513332 (Version 4)
Quarter: 2019Q2

REPORT INFORMATION
  Report Type: Spontaneous
  Country: JP (occurrence: JP)
  Receive Date: 20150916
  Receipt Date: 20190513
  Transmission Date: 20190711
  Serious: Yes (Hospitalization, Other)
  Sender: FDA-Public Use
  Company Number: PHJP2015JP015754

PATIENT
  Age: 77 Year
  Sex: Male

DRUGS (13)
  1. GLIVEC [Suspect]
     Active Substance: IMATINIB MESYLATE
     Dosage: 200 MG, QD
     Route: 048
     Dates: start: 201309
  2. THYRADIN [Concomitant]
     Active Substance: LEVOTHYROXINE
     Indication: HYPOTHYROIDISM
     Dosage: UNK
     Route: 048
  3. GLIVEC [Suspect]
     Active Substance: IMATINIB MESYLATE
     Dosage: 200 MG, QD
     Route: 048
  4. GLIVEC [Suspect]
     Active Substance: IMATINIB MESYLATE
     Dosage: 100 MG, DAILY
     Route: 048
     Dates: start: 201405
  5. TASIGNA [Suspect]
     Active Substance: NILOTINIB
     Indication: CHRONIC MYELOID LEUKAEMIA
     Dosage: 300 MG, QD
     Route: 048
     Dates: start: 201309, end: 201309
  6. PLETAAL [Concomitant]
     Active Substance: CILOSTAZOL
     Indication: CEREBRAL INFARCTION
     Dosage: UNK
     Route: 048
  7. BAYASPIRIN [Concomitant]
     Active Substance: ASPIRIN
     Indication: CEREBRAL INFARCTION
     Dosage: UNK
     Route: 048
  8. INTERFERON ALFA NOS [Concomitant]
     Active Substance: INTERFERON ALFA-2A OR INTERFERON ALFA-2B
     Indication: CHRONIC MYELOID LEUKAEMIA
     Dosage: 300 MIU, QW2
     Route: 065
  9. GLIVEC [Suspect]
     Active Substance: IMATINIB MESYLATE
     Indication: CHRONIC MYELOID LEUKAEMIA
     Dosage: 400 MG, QD
     Route: 048
  10. GLIVEC [Suspect]
     Active Substance: IMATINIB MESYLATE
     Dosage: 300 MG, QD
     Route: 048
  11. GLIVEC [Suspect]
     Active Substance: IMATINIB MESYLATE
     Dosage: APPROXIMATELY 50 TO 60 PERCENT OF THE DOSE (OF 300 MG)
     Route: 048
     Dates: start: 201307, end: 201309
  12. GLIVEC [Suspect]
     Active Substance: IMATINIB MESYLATE
     Dosage: 100 MG, QD
     Route: 048
     Dates: start: 201503
  13. GLIVEC [Suspect]
     Active Substance: IMATINIB MESYLATE
     Dosage: 200 MG, QD
     Route: 048
     Dates: start: 201409, end: 201502

REACTIONS (14)
  - Therapeutic response decreased [Recovering/Resolving]
  - Pleural effusion [Recovering/Resolving]
  - Second primary malignancy [Recovered/Resolved]
  - Swelling [Unknown]
  - Renal failure [Not Recovered/Not Resolved]
  - Chronic kidney disease [Unknown]
  - Colon cancer [Recovered/Resolved]
  - Anaemia [Not Recovered/Not Resolved]
  - Oedema [Recovering/Resolving]
  - Gastrointestinal disorder [Unknown]
  - Cardiac failure [Not Recovered/Not Resolved]
  - Incorrect dose administered [Unknown]
  - Nausea [Unknown]
  - Muscle spasms [Unknown]

NARRATIVE: CASE EVENT DATE: 2012
